FAERS Safety Report 11855938 (Version 1)
Quarter: 2015Q4

REPORT INFORMATION
  Report Type: Spontaneous
  Country: JP (occurrence: JP)
  Receive Date: 20151221
  Receipt Date: 20151221
  Transmission Date: 20160305
  Serious: Yes (Other)
  Sender: FDA-Public Use
  Company Number: JP-PFIZER INC-2015439193

PATIENT
  Sex: Male

DRUGS (4)
  1. AZULFIDINE EN-TABS [Suspect]
     Active Substance: SULFASALAZINE
     Dosage: UNK
     Route: 048
     Dates: start: 201505
  2. RIMATIL [Suspect]
     Active Substance: BUCILLAMINE
     Dosage: 3 DF, DAILY
     Route: 048
  3. PROGRAF [Suspect]
     Active Substance: TACROLIMUS\TACROLIMUS ANHYDROUS
     Dosage: UNK
     Dates: start: 201505
  4. RIMATIL [Suspect]
     Active Substance: BUCILLAMINE
     Dosage: 2 DF, DAILY
     Route: 048
     Dates: start: 201505

REACTIONS (4)
  - Proteinuria [Unknown]
  - Matrix metalloproteinase-3 increased [Unknown]
  - Renal impairment [Unknown]
  - Oedema peripheral [Unknown]
